FAERS Safety Report 10380771 (Version 1)
Quarter: 2014Q3

REPORT INFORMATION
  Report Type: Report from Study
  Country: US (occurrence: US)
  Receive Date: 20140813
  Receipt Date: 20140813
  Transmission Date: 20150326
  Serious: Yes (Hospitalization, Other)
  Sender: FDA-Public Use
  Company Number: US-BAYER-2014-118069

PATIENT
  Sex: Male

DRUGS (2)
  1. BETASERON [Suspect]
     Active Substance: INTERFERON BETA-1B
     Indication: MULTIPLE SCLEROSIS
     Dosage: 0.25 MG, QOD
     Route: 058
     Dates: start: 1994
  2. BETASERON [Suspect]
     Active Substance: INTERFERON BETA-1B
     Indication: MULTIPLE SCLEROSIS
     Dosage: UNK, QOD
     Route: 058
     Dates: start: 1994, end: 1994

REACTIONS (9)
  - Stent placement [None]
  - Injection site mass [None]
  - Injection site scab [None]
  - Coronary artery bypass [None]
  - Pyrexia [None]
  - Coronary artery occlusion [None]
  - Injection site erythema [None]
  - Influenza like illness [None]
  - Injection site pain [None]

NARRATIVE: CASE EVENT DATE: 1994
